FAERS Safety Report 21767824 (Version 2)
Quarter: 2023Q1

REPORT INFORMATION
  Report Type: Spontaneous
  Country: US (occurrence: None)
  Receive Date: 20221222
  Receipt Date: 20230220
  Transmission Date: 20230417
  Serious: Yes (Life-Threatening, Hospitalization)
  Sender: FDA-Public Use
  Company Number: 2022A412084

PATIENT
  Age: 67 Year
  Sex: Female
  Weight: 55.3 kg

DRUGS (2)
  1. SYMBICORT [Suspect]
     Active Substance: BUDESONIDE\FORMOTEROL FUMARATE DIHYDRATE
     Indication: Asthma
     Route: 055
     Dates: start: 202002
  2. SYMBICORT [Suspect]
     Active Substance: BUDESONIDE\FORMOTEROL FUMARATE DIHYDRATE
     Indication: Chronic obstructive pulmonary disease
     Route: 055
     Dates: start: 202002

REACTIONS (10)
  - Respiratory failure [Recovered/Resolved with Sequelae]
  - Allergy to arthropod sting [Recovered/Resolved with Sequelae]
  - Asthma [Unknown]
  - Chronic obstructive pulmonary disease [Unknown]
  - Bronchitis [Recovering/Resolving]
  - Pleurisy [Unknown]
  - Off label use [Unknown]
  - Incorrect dose administered by device [Unknown]
  - Intentional device misuse [Unknown]
  - Device malfunction [Unknown]

NARRATIVE: CASE EVENT DATE: 20221001
